FAERS Safety Report 8094972-4 (Version None)
Quarter: 2012Q1

REPORT INFORMATION
  Report Type: 
  Country: None (occurrence: None)
  Receive Date: 20120131
  Receipt Date: 20111118
  Transmission Date: 20120608
  Serious: No
  Sender: FDA-Public Use
  Company Number: US-ABBOTT-11P-163-0876232-00

PATIENT
  Sex: Female
  Weight: 47.216 kg

DRUGS (1)
  1. CREON [Suspect]
     Indication: DYSPEPSIA
     Dosage: 4 CAPSULES PER DAY
     Dates: end: 20100101

REACTIONS (3)
  - PARAESTHESIA [None]
  - VERTIGO [None]
  - PAIN IN EXTREMITY [None]
